FAERS Safety Report 23616723 (Version 1)
Quarter: 2024Q1

REPORT INFORMATION
  Report Type: Spontaneous
  Country: US (occurrence: US)
  Receive Date: 20240311
  Receipt Date: 20240311
  Transmission Date: 20240409
  Serious: Yes (Other)
  Sender: FDA-Public Use
  Company Number: US-BAYER-2024A033445

PATIENT
  Sex: Male

DRUGS (1)
  1. TINACTIN SUPER ABSORBENT [Suspect]
     Active Substance: TOLNAFTATE

REACTIONS (2)
  - Mesothelioma [None]
  - Exposure to chemical pollution [None]
